FAERS Safety Report 11850390 (Version 1)
Quarter: 2015Q4

REPORT INFORMATION
  Report Type: Spontaneous
  Country: US (occurrence: US)
  Receive Date: 20151218
  Receipt Date: 20151218
  Transmission Date: 20160305
  Serious: No
  Sender: FDA-Public Use
  Company Number: US-JNJFOC-20151201655

PATIENT
  Age: 46 Year
  Sex: Female
  Weight: 58.97 kg

DRUGS (1)
  1. TYLENOL COLD SORE THROAT EXTRA STRENGTH [Suspect]
     Active Substance: ACETAMINOPHEN
     Indication: OROPHARYNGEAL PAIN
     Dosage: 1 TABLESPOONS-ONCE AND THEN AGAIN AFTER A FEW HOURS
     Route: 048
     Dates: start: 20151128, end: 20151130

REACTIONS (2)
  - Expired product administered [Unknown]
  - Therapeutic response unexpected [Unknown]
